FAERS Safety Report 15558107 (Version 1)
Quarter: 2018Q4

REPORT INFORMATION
  Report Type: Spontaneous
  Country: US (occurrence: US)
  Receive Date: 20181027
  Receipt Date: 20181027
  Transmission Date: 20190205
  Serious: No
  Sender: FDA-Public Use
  Company Number: US-009507513-1810USA012121

PATIENT
  Sex: Female

DRUGS (1)
  1. ASMANEX [Suspect]
     Active Substance: MOMETASONE FUROATE
     Dosage: STRENGTH: 220 MICROGRAM
     Route: 055

REACTIONS (3)
  - Product quality issue [Unknown]
  - Poor quality device used [Unknown]
  - No adverse event [Unknown]

NARRATIVE: CASE EVENT DATE: 20181025
